FAERS Safety Report 15851765 (Version 1)
Quarter: 2019Q1

REPORT INFORMATION
  Report Type: Spontaneous
  Country: DE (occurrence: DE)
  Receive Date: 20190122
  Receipt Date: 20190122
  Transmission Date: 20190417
  Serious: Yes (Other)
  Sender: FDA-Public Use
  Company Number: DE-ASTRAZENECA-2019SE08353

PATIENT
  Age: 77 Year
  Sex: Female

DRUGS (4)
  1. QUETIAPINE. [Suspect]
     Active Substance: QUETIAPINE
     Dosage: UNKNOWN FORM STRENGTH
     Route: 048
  2. ZOLPIDEM TARTRATE. [Concomitant]
     Active Substance: ZOLPIDEM TARTRATE
  3. STILNOX [Concomitant]
     Active Substance: ZOLPIDEM TARTRATE
  4. TRAMAL [Interacting]
     Active Substance: TRAMADOL
     Route: 048

REACTIONS (2)
  - Drug interaction [Unknown]
  - Arrhythmia [Unknown]
